FAERS Safety Report 8517307-9 (Version None)
Quarter: 2012Q3

REPORT INFORMATION
  Report Type: 
  Country: None (occurrence: None)
  Receive Date: 20120706
  Receipt Date: 20120620
  Transmission Date: 20120928
  Serious: Yes (Other)
  Sender: FDA-Public Use
  Company Number: 12-030

PATIENT
  Age: 38 Year
  Sex: Male

DRUGS (6)
  1. OXYCODONE HCL [Suspect]
     Indication: GASTRIC DISORDER
     Dosage: 20ML Q 4 HOURS, 1-1.5 YEARS
  2. OXYCODONE HCL [Suspect]
     Indication: GASTRIC BYPASS
     Dosage: 20ML Q 4 HOURS, 1-1.5 YEARS
  3. LOPERAMIDE [Concomitant]
  4. OMEPRAZOLE [Concomitant]
  5. NORCO 1000MG (BREAK-THROUGH PAIN MEDICATION) [Concomitant]
  6. ^UNKNOWN BLOOD PRESSURE MEDICATION^ [Concomitant]

REACTIONS (2)
  - PRODUCT COLOUR ISSUE [None]
  - HYPOAESTHESIA ORAL [None]
